FAERS Safety Report 4349515-5 (Version None)
Quarter: 2004Q2

REPORT INFORMATION
  Report Type: 
  Country: None (occurrence: None)
  Receive Date: 20040426
  Receipt Date: 20040417
  Transmission Date: 20050107
  Serious: Yes (Congenital Anomaly)
  Sender: FDA-Public Use
  Company Number: 200400555

PATIENT
  Age: 13 Month
  Sex: Male

DRUGS (1)
  1. BOTOX [Suspect]
     Indication: DRUG EXPOSURE DURING PREGNANCY

REACTIONS (2)
  - BRAIN NEOPLASM [None]
  - MATERNAL DRUGS AFFECTING FOETUS [None]
